FAERS Safety Report 18998990 (Version 2)
Quarter: 2021Q2

REPORT INFORMATION
  Report Type: Spontaneous
  Country: US (occurrence: US)
  Receive Date: 20210312
  Receipt Date: 20210405
  Transmission Date: 20210717
  Serious: Yes (Death, Hospitalization)
  Sender: FDA-Public Use
  Company Number: US-ABBVIE-21K-163-3812177-00

PATIENT
  Age: 67 Year
  Sex: Male

DRUGS (1)
  1. HUMIRA [Suspect]
     Active Substance: ADALIMUMAB
     Indication: PSORIASIS
     Route: 058
     Dates: start: 2018, end: 202101

REACTIONS (5)
  - Pneumonia [Recovering/Resolving]
  - Fall [Recovering/Resolving]
  - Immunodeficiency [Recovering/Resolving]
  - Infection [Recovering/Resolving]
  - Dementia [Fatal]

NARRATIVE: CASE EVENT DATE: 20201021
